FAERS Safety Report 18590766 (Version 1)
Quarter: 2020Q4

REPORT INFORMATION
  Report Type: Spontaneous
  Country: IT (occurrence: IT)
  Receive Date: 20201208
  Receipt Date: 20201208
  Transmission Date: 20210114
  Serious: Yes (Death)
  Sender: FDA-Public Use
  Company Number: IT-TEVA-2020-IT-1855154

PATIENT
  Age: 83 Year
  Sex: Male

DRUGS (2)
  1. BISOPROLOL FUMARATE. [Suspect]
     Active Substance: BISOPROLOL FUMARATE
     Route: 065
  2. WARFARIN SODIUM. [Suspect]
     Active Substance: WARFARIN SODIUM
     Route: 065

REACTIONS (4)
  - Bradycardia [Fatal]
  - Cardiac failure [Fatal]
  - Conjunctival haemorrhage [Fatal]
  - Subdural haematoma [Fatal]
